FAERS Safety Report 19264673 (Version 1)
Quarter: 2021Q2

REPORT INFORMATION
  Report Type: Spontaneous
  Country: US (occurrence: US)
  Receive Date: 20210517
  Receipt Date: 20210517
  Transmission Date: 20210717
  Serious: No
  Sender: FDA-Public Use
  Company Number: NVSC2021US107166

PATIENT
  Sex: Female

DRUGS (12)
  1. BOSUTINIB [Suspect]
     Active Substance: BOSUTINIB
     Indication: PRODUCT USED FOR UNKNOWN INDICATION
     Dosage: 300 MG, QD
     Route: 065
     Dates: start: 201805
  2. DASATINIB. [Suspect]
     Active Substance: DASATINIB
     Dosage: 100 MG, QD
     Route: 065
     Dates: start: 201511
  3. DASATINIB. [Suspect]
     Active Substance: DASATINIB
     Dosage: 140 MG
     Route: 065
  4. BOSUTINIB [Suspect]
     Active Substance: BOSUTINIB
     Dosage: 400 MG, QD
     Route: 065
  5. DASATINIB. [Suspect]
     Active Substance: DASATINIB
     Indication: PRODUCT USED FOR UNKNOWN INDICATION
     Dosage: 100 MG, QD
     Route: 065
     Dates: start: 201408
  6. PONATINIB [Suspect]
     Active Substance: PONATINIB
     Indication: PRODUCT USED FOR UNKNOWN INDICATION
     Dosage: 45 MG, QD
     Route: 065
     Dates: start: 201510
  7. ASCIMINIB [Suspect]
     Active Substance: ASCIMINIB
     Indication: PRODUCT USED FOR UNKNOWN INDICATION
     Dosage: 40 MG, BID
     Route: 065
  8. PONATINIB [Suspect]
     Active Substance: PONATINIB
     Dosage: 15 MG, QD
     Route: 065
     Dates: start: 201606
  9. IMATINIB. [Suspect]
     Active Substance: IMATINIB MESYLATE
     Indication: CHRONIC MYELOID LEUKAEMIA
     Dosage: 200 MG, BID
     Route: 065
     Dates: start: 2008
  10. IMATINIB. [Suspect]
     Active Substance: IMATINIB MESYLATE
     Dosage: 400 MG, QD
     Route: 065
     Dates: start: 202103
  11. NILOTINIB [Suspect]
     Active Substance: NILOTINIB
     Indication: PRODUCT USED FOR UNKNOWN INDICATION
     Dosage: 300 MG, BID
     Route: 065
  12. PONATINIB [Suspect]
     Active Substance: PONATINIB
     Dosage: 15 MG, QD
     Route: 065

REACTIONS (11)
  - Dyspepsia [Unknown]
  - Gastrointestinal disorder [Unknown]
  - Dizziness [Unknown]
  - Alopecia [Unknown]
  - Diarrhoea [Unknown]
  - Oral pain [Unknown]
  - Musculoskeletal pain [Unknown]
  - Neck pain [Unknown]
  - Nausea [Unknown]
  - Palpitations [Unknown]
  - Chest pain [Unknown]
